FAERS Safety Report 13338896 (Version 2)
Quarter: 2017Q2

REPORT INFORMATION
  Report Type: Spontaneous
  Country: JP (occurrence: JP)
  Receive Date: 20170315
  Receipt Date: 20170411
  Transmission Date: 20170830
  Serious: Yes (Death, Hospitalization, Other)
  Sender: FDA-Public Use
  Company Number: PHJP2016JP026501

PATIENT
  Age: 72 Year
  Sex: Female
  Weight: 41 kg

DRUGS (15)
  1. PREDONINE [Concomitant]
     Active Substance: PREDNISOLONE
     Indication: PRODUCT USED FOR UNKNOWN INDICATION
     Dosage: 30 MG, QD
     Route: 048
     Dates: start: 20160819
  2. BROTIZOLAM [Concomitant]
     Active Substance: BROTIZOLAM
     Indication: INSOMNIA
     Dosage: 0.25 MG, QD
     Route: 048
  3. FEBURIC [Concomitant]
     Active Substance: FEBUXOSTAT
     Indication: PRODUCT USED FOR UNKNOWN INDICATION
     Dosage: 10 MG, QD
     Route: 065
     Dates: start: 20160703
  4. HALAVEN [Concomitant]
     Active Substance: ERIBULIN MESYLATE
     Indication: PRODUCT USED FOR UNKNOWN INDICATION
     Dosage: 1.1 MG/M2, QD
     Route: 042
     Dates: start: 20160920
  5. MOSAPRIDE [Concomitant]
     Active Substance: MOSAPRIDE
     Indication: NAUSEA
     Dosage: 5 MG, TID
     Route: 048
  6. DECADRON [Concomitant]
     Active Substance: DEXAMETHASONE
     Indication: PRODUCT USED FOR UNKNOWN INDICATION
     Dosage: 1 MG, QD
     Route: 065
     Dates: start: 20160703
  7. VOTRIENT [Suspect]
     Active Substance: PAZOPANIB HYDROCHLORIDE
     Indication: SOFT TISSUE SARCOMA
     Dosage: 800 MG, QD
     Route: 048
     Dates: start: 20160703, end: 20160816
  8. PREDONINE [Concomitant]
     Active Substance: PREDNISOLONE
     Dosage: 20 MG, QD
     Route: 048
     Dates: start: 20160825
  9. HALAVEN [Concomitant]
     Active Substance: ERIBULIN MESYLATE
     Dosage: 1.1 MG/M2, QD
     Route: 042
     Dates: start: 20160927
  10. PREDONINE [Concomitant]
     Active Substance: PREDNISOLONE
     Dosage: 10 MG, QD
     Route: 048
     Dates: start: 20160908
  11. HALAVEN [Concomitant]
     Active Substance: ERIBULIN MESYLATE
     Dosage: 0.7 MG/M2, QD
     Route: 042
     Dates: start: 20161011
  12. VOTRIENT [Suspect]
     Active Substance: PAZOPANIB HYDROCHLORIDE
     Indication: TERATOMA
     Dosage: 400 MG, QD
     Route: 048
     Dates: start: 20161022, end: 20161206
  13. PREDONINE [Concomitant]
     Active Substance: PREDNISOLONE
     Dosage: 5 MG, QD
     Route: 048
     Dates: start: 20161011
  14. VOTRIENT [Suspect]
     Active Substance: PAZOPANIB HYDROCHLORIDE
     Dosage: 600 MG, QD
     Route: 048
     Dates: start: 20161207, end: 20161220
  15. HALAVEN [Concomitant]
     Active Substance: ERIBULIN MESYLATE
     Dosage: 0.7 MG/M2, QD
     Route: 042
     Dates: start: 20161018

REACTIONS (15)
  - Cardiac arrest [Fatal]
  - Hyperkalaemia [Fatal]
  - Decreased appetite [Not Recovered/Not Resolved]
  - Renal failure [Unknown]
  - Teratoma [Fatal]
  - Interstitial lung disease [Recovered/Resolved]
  - Malaise [Not Recovered/Not Resolved]
  - Blood pressure decreased [Fatal]
  - Pyrexia [Unknown]
  - Gamma-glutamyltransferase increased [Unknown]
  - Blood lactate dehydrogenase increased [Unknown]
  - Abdominal distension [Fatal]
  - Malignant neoplasm progression [Fatal]
  - Cough [Recovering/Resolving]
  - Blood alkaline phosphatase increased [Unknown]

NARRATIVE: CASE EVENT DATE: 20160802
